FAERS Safety Report 9136904 (Version 1)
Quarter: 2013Q1

REPORT INFORMATION
  Report Type: Spontaneous
  Country: BR (occurrence: BR)
  Receive Date: 20130304
  Receipt Date: 20130304
  Transmission Date: 20140127
  Serious: Yes (Other)
  Sender: FDA-Public Use
  Company Number: PHHY2013BR020626

PATIENT
  Age: 61 Year
  Sex: Female

DRUGS (2)
  1. VOLTAREN [Suspect]
     Indication: INFLAMMATION
     Dosage: 3 DF (75MG TABLET A DAY)
     Route: 048
  2. VOLTAREN [Suspect]
     Dosage: 50 MG, QD
     Route: 048

REACTIONS (2)
  - Pulpitis dental [Unknown]
  - Tooth disorder [Unknown]
